FAERS Safety Report 18812186 (Version 2)
Quarter: 2021Q1

REPORT INFORMATION
  Report Type: Spontaneous
  Country: US (occurrence: US)
  Receive Date: 20210129
  Receipt Date: 20210204
  Transmission Date: 20210419
  Serious: No
  Sender: FDA-Public Use
  Company Number: US-PFIZER INC-2021057418

PATIENT
  Age: 62 Year
  Sex: Male
  Weight: 117 kg

DRUGS (1)
  1. GABAPENTIN. [Suspect]
     Active Substance: GABAPENTIN
     Indication: NEURALGIA
     Dosage: 100 MG, 2X/DAY
     Dates: start: 20201226

REACTIONS (6)
  - Intentional product misuse [Unknown]
  - Visual impairment [Unknown]
  - Hypoaesthesia [Unknown]
  - Groin pain [Unknown]
  - Pain in extremity [Unknown]
  - Arthralgia [Unknown]
